FAERS Safety Report 5995487-7 (Version None)
Quarter: 2008Q4

REPORT INFORMATION
  Report Type: 
  Country: None (occurrence: None)
  Receive Date: 20081212
  Receipt Date: 20080703
  Transmission Date: 20090506
  Serious: No
  Sender: FDA-Public Use
  Company Number: US-AMGEN-KDL292359

PATIENT
  Sex: Female

DRUGS (2)
  1. ENBREL [Suspect]
     Indication: PSORIATIC ARTHROPATHY
     Route: 058
     Dates: start: 20030122
  2. METHOTREXATE [Concomitant]
     Route: 048

REACTIONS (4)
  - BRONCHITIS [None]
  - PSORIATIC ARTHROPATHY [None]
  - STRESS [None]
  - VIRAL UPPER RESPIRATORY TRACT INFECTION [None]
